FAERS Safety Report 20710248 (Version 1)
Quarter: 2022Q2

REPORT INFORMATION
  Report Type: Spontaneous
  Country: US (occurrence: US)
  Receive Date: 20220414
  Receipt Date: 20220414
  Transmission Date: 20220720
  Serious: No
  Sender: FDA-Public Use
  Company Number: US-ORGANON-O2204USA000924

PATIENT
  Sex: Female
  Weight: 70.295 kg

DRUGS (1)
  1. NEXPLANON [Suspect]
     Active Substance: ETONOGESTREL
     Indication: Contraception
     Dosage: 1 ROD FOR 3 YEARS IN LEFT ARM
     Route: 059
     Dates: start: 20200501

REACTIONS (4)
  - Presyncope [Not Recovered/Not Resolved]
  - Dizziness [Not Recovered/Not Resolved]
  - Somnolence [Not Recovered/Not Resolved]
  - Discomfort [Not Recovered/Not Resolved]
